FAERS Safety Report 6634259-7 (Version None)
Quarter: 2010Q1

REPORT INFORMATION
  Report Type: 
  Country: None (occurrence: None)
  Receive Date: 20100315
  Receipt Date: 20100304
  Transmission Date: 20100710
  Serious: Yes (Other)
  Sender: FDA-Public Use
  Company Number: PHHY2010ZA13372

PATIENT
  Sex: Female

DRUGS (4)
  1. CO-DIOVAN [Suspect]
     Dosage: 80 (UNIT UNKNOWN)
     Dates: start: 20090601
  2. CO-DIOVAN [Suspect]
     Dosage: 160 (UNIT UNKNOWN)
  3. VENLAFAXINE [Concomitant]
     Indication: DEPRESSION
     Dosage: UNK
  4. CARLOC [Concomitant]
     Dosage: UNK

REACTIONS (1)
  - HYPERTENSION [None]
